FAERS Safety Report 5192506-5 (Version None)
Quarter: 2006Q4

REPORT INFORMATION
  Report Type: 
  Country: None (occurrence: None)
  Receive Date: 20061220
  Receipt Date: 20061213
  Transmission Date: 20070319
  Serious: Yes (Other)
  Sender: FDA-Public Use
  Company Number: A-CH2006-13832

PATIENT
  Age: 59 Year
  Sex: Female
  Weight: 72 kg

DRUGS (11)
  1. TRACLEER [Suspect]
     Indication: DRUG USE FOR UNKNOWN INDICATION
     Dosage: 62.5 MG, BID, ORAL; 125 MG, BID, ORAL
     Route: 048
     Dates: start: 20060601, end: 20060701
  2. TRACLEER [Suspect]
     Indication: DRUG USE FOR UNKNOWN INDICATION
     Dosage: 62.5 MG, BID, ORAL; 125 MG, BID, ORAL
     Route: 048
     Dates: start: 20060701
  3. METFORMIN HCL [Concomitant]
  4. LEVOTHYROXINE SODIUM [Concomitant]
  5. LIPITOR [Concomitant]
  6. NIFEDIPINE [Concomitant]
  7. TOLBUTAMIDE [Concomitant]
  8. SPIRONOLACTONE [Concomitant]
  9. BUMETANIDE [Concomitant]
  10. TAMOXIFEN CITRATE [Concomitant]
  11. ACENOCOUMAROL        (ACENOCOUMAROL) [Concomitant]

REACTIONS (1)
  - POLYMYALGIA RHEUMATICA [None]
